FAERS Safety Report 5601451-X (Version None)
Quarter: 2008Q1

REPORT INFORMATION
  Report Type: 
  Country: None (occurrence: None)
  Receive Date: 20080124
  Receipt Date: 20080115
  Transmission Date: 20080703
  Serious: Yes (Other)
  Sender: FDA-Public Use
  Company Number: US-ASTRAZENECA-2006UW08047

PATIENT
  Age: 574 Month
  Sex: Female
  Weight: 90.9 kg

DRUGS (3)
  1. SEROQUEL [Suspect]
     Indication: BIPOLAR DISORDER
     Route: 048
     Dates: start: 19980501, end: 20060301
  2. GEODON [Concomitant]
     Dates: start: 20060301
  3. ZYPREXA [Concomitant]
     Dates: start: 19960101, end: 19980101

REACTIONS (3)
  - BLOOD CHOLESTEROL INCREASED [None]
  - DIABETES MELLITUS [None]
  - NEUROPATHY PERIPHERAL [None]
